FAERS Safety Report 9649282 (Version 1)
Quarter: 2013Q4

REPORT INFORMATION
  Report Type: Spontaneous
  Country: JP (occurrence: JP)
  Receive Date: 20131028
  Receipt Date: 20131028
  Transmission Date: 20140711
  Serious: Yes (Disabling)
  Sender: FDA-Public Use
  Company Number: JP-GLAXOSMITHKLINE-B0935897A

PATIENT
  Age: 63 Year
  Sex: Female

DRUGS (2)
  1. TYKERB [Suspect]
     Indication: BREAST CANCER
     Route: 048
     Dates: start: 20130918
  2. XELODA [Concomitant]
     Indication: BREAST CANCER
     Route: 048

REACTIONS (3)
  - Paronychia [Not Recovered/Not Resolved]
  - Skin disorder [Not Recovered/Not Resolved]
  - Inflammation [Not Recovered/Not Resolved]
